FAERS Safety Report 12987757 (Version 1)
Quarter: 2016Q4

REPORT INFORMATION
  Report Type: Spontaneous
  Country: US (occurrence: US)
  Receive Date: 20161130
  Receipt Date: 20161130
  Transmission Date: 20170207
  Serious: No
  Sender: FDA-Public Use
  Company Number: None

PATIENT
  Age: 57 Year
  Sex: Female
  Weight: 106.14 kg

DRUGS (15)
  1. CLONAZEPAM. [Concomitant]
     Active Substance: CLONAZEPAM
  2. CYMBALTA [Suspect]
     Active Substance: DULOXETINE HYDROCHLORIDE
     Indication: DIABETES MELLITUS
     Dosage: ONE PILL EVERYDAY  MOUTH
     Route: 048
     Dates: start: 20130927, end: 20131130
  3. ASPIRIN. [Concomitant]
     Active Substance: ASPIRIN
  4. ALOE VERA [Concomitant]
     Active Substance: ALOE VERA LEAF
  5. LANTUS [Concomitant]
     Active Substance: INSULIN GLARGINE
  6. NOVOLIN R [Concomitant]
     Active Substance: INSULIN HUMAN
  7. OMEPRAZOLE. [Concomitant]
     Active Substance: OMEPRAZOLE
  8. PAXIL [Concomitant]
     Active Substance: PAROXETINE HYDROCHLORIDE
  9. CYMBALTA [Suspect]
     Active Substance: DULOXETINE HYDROCHLORIDE
     Indication: DEPRESSION
     Dosage: ONE PILL EVERYDAY  MOUTH
     Route: 048
     Dates: start: 20130927, end: 20131130
  10. LOSARTAN AND HYDROCHLOROTHIAZIDE [Concomitant]
     Active Substance: HYDROCHLOROTHIAZIDE\LOSARTAN POTASSIUM
  11. HYDROXYZINE HCL [Concomitant]
     Active Substance: HYDROXYZINE HYDROCHLORIDE
  12. CYMBALTA [Suspect]
     Active Substance: DULOXETINE HYDROCHLORIDE
     Indication: NEURALGIA
     Dosage: ONE PILL EVERYDAY  MOUTH
     Route: 048
     Dates: start: 20130927, end: 20131130
  13. ZOCOR [Concomitant]
     Active Substance: SIMVASTATIN
  14. TRAMADOL. [Concomitant]
     Active Substance: TRAMADOL
  15. ESTROVEN [Concomitant]
     Active Substance: DIETARY SUPPLEMENT

REACTIONS (5)
  - Mood altered [None]
  - Vomiting [None]
  - Mental disorder [None]
  - Nausea [None]
  - Musculoskeletal stiffness [None]

NARRATIVE: CASE EVENT DATE: 20161115
